FAERS Safety Report 11895609 (Version 10)
Quarter: 2017Q4

REPORT INFORMATION
  Report Type: Spontaneous
  Country: US (occurrence: US)
  Receive Date: 20160107
  Receipt Date: 20171127
  Transmission Date: 20180320
  Serious: Yes (Other)
  Sender: FDA-Public Use
  Company Number: US-PFIZER INC-2016002816

PATIENT
  Age: 48 Year
  Sex: Female
  Weight: 99.79 kg

DRUGS (45)
  1. NEURONTIN [Suspect]
     Active Substance: GABAPENTIN
     Indication: MULTIPLE SCLEROSIS
     Dosage: 600 MG, UNK (5 TIMES DAILY)
     Route: 048
  2. NEURONTIN [Suspect]
     Active Substance: GABAPENTIN
     Indication: PAIN IN EXTREMITY
  3. IRON DEXTRAN [Concomitant]
     Active Substance: IRON DEXTRAN
     Dosage: UNK
     Dates: start: 20160520
  4. COMBIVENT RESPIMAT [Concomitant]
     Active Substance: ALBUTEROL SULFATE\IPRATROPIUM BROMIDE
     Dosage: 2 DF, AS NEEDED (2 PUFFS QID PRN) (20-100 MCG/ACT AERS)
  5. NUCYNTA [Concomitant]
     Active Substance: TAPENTADOL HYDROCHLORIDE
     Indication: NECK PAIN
     Dosage: 100 MG, AS NEEDED (1 TABLET(S) TWICE A DAY)
     Route: 048
     Dates: start: 20160520
  6. NEURONTIN [Suspect]
     Active Substance: GABAPENTIN
     Indication: SPINAL PAIN
  7. CYMBALTA [Concomitant]
     Active Substance: DULOXETINE HYDROCHLORIDE
     Indication: SPINAL PAIN
     Dosage: 30 MG, DAILY
     Route: 048
     Dates: start: 20161012
  8. CYMBALTA [Concomitant]
     Active Substance: DULOXETINE HYDROCHLORIDE
     Indication: BACK PAIN
  9. OTRIM [Concomitant]
     Dosage: UNK
  10. KLOR-CON M10 [Concomitant]
     Active Substance: POTASSIUM CHLORIDE
     Dosage: 10 MEQ, 2X/DAY
     Route: 048
  11. VENTOLIN HFA [Concomitant]
     Active Substance: ALBUTEROL SULFATE
     Dosage: 2 DF, AS NEEDED (2 PUFFS QID PRN)(1Q8 (90 BASE) MCG/ACT)
  12. NEURONTIN [Suspect]
     Active Substance: GABAPENTIN
     Indication: PAIN IN EXTREMITY
     Dosage: 600 MG, 4X/DAY
     Route: 048
     Dates: start: 20160520
  13. PROTONIX /00661201/ [Concomitant]
     Active Substance: OMEPRAZOLE
     Dosage: 20 MG, DAILY
     Route: 048
  14. BUTRANS [Concomitant]
     Active Substance: BUPRENORPHINE
     Indication: BACK PAIN
  15. BELSOMRA [Concomitant]
     Active Substance: SUVOREXANT
     Dosage: 20 MG, AS NEEDED (ONE PO HS PRN)
     Route: 048
  16. VITAMIN B1 [Concomitant]
     Active Substance: THIAMINE HYDROCHLORIDE
     Dosage: UNK (100 MG-1 MG/ML)
     Route: 030
     Dates: start: 20160520
  17. NEURONTIN [Suspect]
     Active Substance: GABAPENTIN
     Indication: MUSCLE SPASMS
  18. CYMBALTA [Concomitant]
     Active Substance: DULOXETINE HYDROCHLORIDE
     Indication: NECK PAIN
  19. PROTONIX /00661201/ [Concomitant]
     Active Substance: OMEPRAZOLE
     Dosage: 40 MG, 1X/DAY
     Route: 048
     Dates: start: 20170606
  20. VITAMIN D3 [Concomitant]
     Active Substance: CHOLECALCIFEROL
     Dosage: 50000 IU, WEEKLY
     Route: 048
  21. VALIUM [Concomitant]
     Active Substance: DIAZEPAM
     Dosage: 10 MG, 3X/DAY
     Route: 048
  22. VITAMIN B12 [Concomitant]
     Active Substance: CYANOCOBALAMIN
     Dosage: UNK (100 MG-1 MG/ML)
     Route: 030
     Dates: start: 20160520
  23. VITAMIN D [Concomitant]
     Active Substance: CHOLECALCIFEROL
     Dosage: 50000 IU, WEEKLY
     Route: 048
  24. AUBAGIO [Concomitant]
     Active Substance: TERIFLUNOMIDE
     Dosage: 14 MG, DAILY
     Route: 048
     Dates: start: 20170106
  25. AUBAGIO [Concomitant]
     Active Substance: TERIFLUNOMIDE
     Dosage: 7 MG, DAILY
  26. NUCYNTA [Concomitant]
     Active Substance: TAPENTADOL HYDROCHLORIDE
     Indication: BREAKTHROUGH PAIN
  27. NEURONTIN [Suspect]
     Active Substance: GABAPENTIN
     Indication: PAIN
     Dosage: 600 MG, 3X/DAY
     Route: 048
  28. NEURONTIN [Suspect]
     Active Substance: GABAPENTIN
     Indication: BACK PAIN
  29. ULTRAM [Concomitant]
     Active Substance: TRAMADOL HYDROCHLORIDE
     Indication: NECK PAIN
     Dosage: 50 MG, AS NEEDED (1-2 PO 4-6 HOURS AS NEEDED)
     Route: 048
     Dates: start: 20160520
  30. NUVIGIL [Concomitant]
     Active Substance: ARMODAFINIL
     Dosage: 250 MG, 1X/DAY (EACH AM)
     Dates: start: 20160816
  31. NITROSTAT [Concomitant]
     Active Substance: NITROGLYCERIN
     Dosage: 0.6 MG, AS NEEDED (AS NEEDED, MAY REPEAT UP TO 3 TIMES)
     Route: 060
  32. NEURONTIN [Suspect]
     Active Substance: GABAPENTIN
     Indication: NECK PAIN
  33. LYRICA [Concomitant]
     Active Substance: PREGABALIN
     Dosage: 50 MG, UNK
  34. AZOR [Concomitant]
     Active Substance: AMLODIPINE BESYLATE\OLMESARTAN MEDOXOMIL
     Dosage: 1 DF, DAILY [AMLODIPINE BESILATE 5 MG]/[OLMESARTAN MEDOXOMIL 20 MG]
     Route: 048
  35. ZANAFLEX [Concomitant]
     Active Substance: TIZANIDINE HYDROCHLORIDE
     Dosage: UNK UNK, 3X/DAY (2 CAPSULE(S) BY MOUTH AT BED TIME AND AT 1 CAPSULE BY MOUTH TWICE A DAY)
     Dates: start: 20161209
  36. IRON [Concomitant]
     Active Substance: IRON
     Dosage: UNK (EVERY THREE MONTHS)
     Route: 042
  37. BUTRANS [Concomitant]
     Active Substance: BUPRENORPHINE
     Indication: NECK PAIN
     Dosage: UNK UNK, WEEKLY (10 MCG/HR)
  38. LASIX [Concomitant]
     Active Substance: FUROSEMIDE
     Indication: LYMPHOEDEMA
     Dosage: 40 MG, 2X/DAY
     Route: 048
  39. NUCYNTA [Concomitant]
     Active Substance: TAPENTADOL HYDROCHLORIDE
     Indication: BACK PAIN
  40. IRON [Concomitant]
     Active Substance: IRON
     Dosage: 3 DF, 2X/DAY (PILLS)
  41. AZOR [Concomitant]
     Active Substance: AMLODIPINE BESYLATE\OLMESARTAN MEDOXOMIL
     Indication: HYPERTENSION
     Dosage: UNK [AMLODIPINE BESILATE: 10MG, OLMESARTAN MEDOXOMIL: 20 MG]
     Dates: start: 20160520
  42. ULTRAM [Concomitant]
     Active Substance: TRAMADOL HYDROCHLORIDE
     Indication: BACK PAIN
  43. FLOVENT HFA [Concomitant]
     Active Substance: FLUTICASONE PROPIONATE
     Dosage: 1 DF, 2X/DAY
  44. ZOFRAN [Concomitant]
     Active Substance: ONDANSETRON HYDROCHLORIDE
     Dosage: 8 MG, AS NEEDED (3X A DAY PRN)
     Route: 048
  45. FERREX 150 FORTE [Concomitant]
     Active Substance: CYANOCOBALAMIN\FOLIC ACID\IRON
     Dosage: 1 DF, DAILY
     Route: 048

REACTIONS (41)
  - Joint range of motion decreased [Unknown]
  - Off label use [Unknown]
  - Burning sensation [Unknown]
  - Thermal burn [Unknown]
  - Erythema [Unknown]
  - Joint swelling [Unknown]
  - Arthritis [Unknown]
  - Gait disturbance [Unknown]
  - Spinal pain [Unknown]
  - Temperature intolerance [Unknown]
  - Hypovitaminosis [Unknown]
  - Occipital neuralgia [Unknown]
  - Joint warmth [Unknown]
  - Joint effusion [Unknown]
  - Hypoaesthesia [Unknown]
  - Asthenia [Unknown]
  - Swelling [Not Recovered/Not Resolved]
  - Vision blurred [Unknown]
  - Osteoarthritis [Unknown]
  - Tonsillar inflammation [Unknown]
  - Anaemia [Not Recovered/Not Resolved]
  - Vitamin B12 deficiency [Unknown]
  - Fatigue [Unknown]
  - Hypertension [Recovering/Resolving]
  - Lymphoedema [Recovering/Resolving]
  - Tremor [Unknown]
  - Tenderness [Unknown]
  - Muscle spasms [Unknown]
  - Arthralgia [Unknown]
  - Paraesthesia [Unknown]
  - Disturbance in attention [Unknown]
  - Drug ineffective for unapproved indication [Recovered/Resolved]
  - Pain in extremity [Unknown]
  - Eye pain [Unknown]
  - Serum ferritin decreased [Unknown]
  - Cognitive disorder [Unknown]
  - Amnesia [Unknown]
  - Renal neoplasm [Not Recovered/Not Resolved]
  - Splenic neoplasm malignancy unspecified [Not Recovered/Not Resolved]
  - Headache [Unknown]
  - Facial wasting [Unknown]

NARRATIVE: CASE EVENT DATE: 2006
